FAERS Safety Report 11278268 (Version 29)
Quarter: 2019Q1

REPORT INFORMATION
  Report Type: Report from Study
  Country: GB (occurrence: GB)
  Receive Date: 20150717
  Receipt Date: 20190202
  Transmission Date: 20190417
  Serious: Yes (Death, Other)
  Sender: FDA-Public Use
  Company Number: GB-ROCHE-1608708

PATIENT
  Sex: Male
  Weight: 66 kg

DRUGS (4)
  1. RANITIDIN [Concomitant]
     Active Substance: RANITIDINE HYDROCHLORIDE
  2. PANTOPRAZOLE [Concomitant]
     Active Substance: PANTOPRAZOLE
  3. ESBRIET [Suspect]
     Active Substance: PIRFENIDONE
     Dosage: SIX CAPSULES
     Route: 048
  4. ESBRIET [Suspect]
     Active Substance: PIRFENIDONE
     Indication: IDIOPATHIC PULMONARY FIBROSIS
     Route: 048
     Dates: start: 20150430

REACTIONS (23)
  - Dyspnoea exertional [Unknown]
  - Fatigue [Unknown]
  - Oxygen saturation decreased [Unknown]
  - Respiratory rate increased [Unknown]
  - Nasopharyngitis [Unknown]
  - Productive cough [Unknown]
  - Nausea [Unknown]
  - Decreased appetite [Unknown]
  - Eructation [Unknown]
  - Loss of personal independence in daily activities [Unknown]
  - Hypopnoea [Unknown]
  - Photosensitivity reaction [Unknown]
  - Abdominal distension [Unknown]
  - Weight decreased [Unknown]
  - Feeling abnormal [Unknown]
  - Abdominal discomfort [Unknown]
  - Death [Fatal]
  - Cough [Unknown]
  - Malaise [Unknown]
  - Lower respiratory tract infection [Unknown]
  - Dyspnoea [Unknown]
  - Chest discomfort [Unknown]
  - Condition aggravated [Unknown]

NARRATIVE: CASE EVENT DATE: 20170929
